FAERS Safety Report 7372719-4 (Version None)
Quarter: 2011Q1

REPORT INFORMATION
  Report Type: 
  Country: None (occurrence: None)
  Receive Date: 20110324
  Receipt Date: 20110317
  Transmission Date: 20110831
  Serious: Yes (Hospitalization, Other)
  Sender: FDA-Public Use
  Company Number: CA-ABBOTT-11P-028-0712905-00

PATIENT
  Sex: Male
  Weight: 114.86 kg

DRUGS (3)
  1. HUMIRA [Suspect]
     Route: 058
     Dates: start: 20110218
  2. PURINETHOL [Suspect]
     Indication: CROHN'S DISEASE
     Route: 048
     Dates: start: 20090901, end: 20110218
  3. HUMIRA [Suspect]
     Indication: CROHN'S DISEASE
     Route: 058
     Dates: start: 20101001

REACTIONS (8)
  - PROCTALGIA [None]
  - FISTULA [None]
  - ANAL HAEMORRHAGE [None]
  - ABSCESS [None]
  - DRUG INEFFECTIVE [None]
  - RECTAL DISCHARGE [None]
  - CROHN'S DISEASE [None]
  - PURULENT DISCHARGE [None]
